FAERS Safety Report 5966780-9 (Version None)
Quarter: 2008Q4

REPORT INFORMATION
  Report Type: 
  Country: None (occurrence: None)
  Receive Date: 20081125
  Receipt Date: 20081121
  Transmission Date: 20090506
  Serious: Yes (Other)
  Sender: FDA-Public Use
  Company Number: DE-B.I. PHARMACEUTICALS,INC./RIDGEFIELD-2008-DE-07111DE

PATIENT
  Age: 2 Year
  Sex: Female
  Weight: 13 kg

DRUGS (2)
  1. CATAPRES [Suspect]
     Dosage: ONCE 1 TABLET
     Route: 048
  2. T-THXROXIN [Suspect]
     Dosage: ONCE 1 TABLET
     Route: 048

REACTIONS (1)
  - MEDICATION ERROR [None]
